FAERS Safety Report 5852843-5 (Version None)
Quarter: 2008Q3

REPORT INFORMATION
  Report Type: 
  Country: None (occurrence: None)
  Receive Date: 20080821
  Receipt Date: 20080814
  Transmission Date: 20090109
  Serious: Yes (Other)
  Sender: FDA-Public Use
  Company Number: CN-ASTRAZENECA-2008AP05723

PATIENT
  Age: 71 Year
  Sex: Female

DRUGS (2)
  1. CHLOROPROCAINE HCL [Suspect]
     Indication: ANAESTHESIA
     Dosage: 3ML, 5ML THEN 5ML EVERY 5 MINUTES
     Route: 008
  2. DEXAMETHASONE TAB [Concomitant]
     Route: 041

REACTIONS (1)
  - TYPE IV HYPERSENSITIVITY REACTION [None]
